FAERS Safety Report 12155216 (Version 1)
Quarter: 2016Q1

REPORT INFORMATION
  Report Type: Report from Study
  Country: US (occurrence: US)
  Receive Date: 20160307
  Receipt Date: 20160307
  Transmission Date: 20160526
  Serious: Yes (Hospitalization, Other)
  Sender: FDA-Public Use
  Company Number: US-ABBVIE-16K-163-1569701-00

PATIENT
  Age: 77 Year
  Sex: Male

DRUGS (1)
  1. HUMIRA [Suspect]
     Active Substance: ADALIMUMAB
     Indication: CROHN^S DISEASE
     Route: 058
     Dates: start: 2008

REACTIONS (7)
  - Wound dehiscence [Unknown]
  - Bursa removal [Unknown]
  - Fibrosis [Unknown]
  - Joint abscess [Unknown]
  - Soft tissue necrosis [Unknown]
  - Synovitis [Unknown]
  - Impaired healing [Unknown]

NARRATIVE: CASE EVENT DATE: 201512
